FAERS Safety Report 7426689-0 (Version None)
Quarter: 2011Q2

REPORT INFORMATION
  Report Type: 
  Country: None (occurrence: None)
  Receive Date: 20110420
  Receipt Date: 20110415
  Transmission Date: 20111010
  Serious: Yes (Other)
  Sender: FDA-Public Use
  Company Number: CA-B.I. PHARMACEUTICALS,INC./RIDGEFIELD-2011-CN-00483CN

PATIENT

DRUGS (1)
  1. PRADAXA [Suspect]

REACTIONS (2)
  - ACCIDENT [None]
  - SUBARACHNOID HAEMORRHAGE [None]
